FAERS Safety Report 6179590-7 (Version None)
Quarter: 2009Q2

REPORT INFORMATION
  Report Type: 
  Country: None (occurrence: None)
  Receive Date: 20090505
  Receipt Date: 20090423
  Transmission Date: 20091009
  Serious: Yes (Other)
  Sender: FDA-Public Use
  Company Number: US-ELI_LILLY_AND_COMPANY-US200904006999

PATIENT
  Age: 53 Year
  Sex: Female

DRUGS (4)
  1. CYMBALTA [Suspect]
     Dosage: 1 D/F, UNK
     Route: 048
  2. EXENATIDE [Concomitant]
     Indication: DIABETES MELLITUS
     Dosage: 0.25 MG, UNK
     Route: 058
  3. METFORMIN HCL [Concomitant]
  4. EFFEXOR [Concomitant]

REACTIONS (1)
  - PANCREATITIS [None]
